FAERS Safety Report 17724727 (Version 1)
Quarter: 2020Q2

REPORT INFORMATION
  Report Type: Spontaneous
  Country: US (occurrence: US)
  Receive Date: 20200429
  Receipt Date: 20200429
  Transmission Date: 20200714
  Serious: Yes (Other)
  Sender: FDA-Public Use
  Company Number: None

PATIENT
  Age: 5 Year
  Sex: Male
  Weight: 20.3 kg

DRUGS (1)
  1. AGALSIDASE BETA [Suspect]
     Active Substance: AGALSIDASE BETA
     Dosage: ?          OTHER FREQUENCY:EVERY 2 WEEKS;?
     Route: 042

REACTIONS (3)
  - Discoloured vomit [None]
  - Infusion related reaction [None]
  - Cough [None]

NARRATIVE: CASE EVENT DATE: 20200422
